FAERS Safety Report 8396435-5 (Version None)
Quarter: 2012Q1

REPORT INFORMATION
  Report Type: 
  Country: None (occurrence: None)
  Receive Date: 20120323
  Receipt Date: 20110513
  Transmission Date: 20120608
  Serious: Yes (Hospitalization, Disabling, Other)
  Sender: FDA-Public Use
  Company Number: 163-21880-11031691

PATIENT
  Age: 83 Year
  Sex: Female
  Weight: 63.5036 kg

DRUGS (10)
  1. REVLIMID [Suspect]
     Indication: MYELODYSPLASTIC SYNDROME
     Dosage: 5 MG, 1 IN 1 D, PO
     Route: 048
     Dates: start: 20101001, end: 20110312
  2. CALCIUM CARBONATE [Concomitant]
  3. METOPROLOL TARTRATE [Concomitant]
  4. HYDRALAZINE HCL [Concomitant]
  5. INSULIN (INSULIN) (INJECTION) [Concomitant]
  6. GABAPENTIN [Concomitant]
  7. PANTOPRAZOLE [Concomitant]
  8. BENADRYL [Concomitant]
  9. BUSPIRONE HCL [Concomitant]
  10. AVAPRO [Concomitant]

REACTIONS (3)
  - THROMBOCYTOPENIA [None]
  - HAEMOGLOBIN DECREASED [None]
  - GAIT DISTURBANCE [None]
